FAERS Safety Report 10188129 (Version 1)
Quarter: 2014Q2

REPORT INFORMATION
  Report Type: Spontaneous
  Country: US (occurrence: None)
  Receive Date: 20140521
  Receipt Date: 20140521
  Transmission Date: 20141212
  Serious: No
  Sender: FDA-Public Use
  Company Number: None

PATIENT
  Age: 67 Year
  Sex: Female
  Weight: 74.84 kg

DRUGS (12)
  1. BONIVA [Suspect]
     Indication: OSTEOPENIA
     Route: 048
     Dates: start: 20130201
  2. IRBESARTAN [Concomitant]
  3. 1 A DAY MULTI VITAMIN [Concomitant]
  4. PROBIOTIC [Concomitant]
  5. CALCIUM CHEWS [Concomitant]
  6. VITAMIN C [Concomitant]
  7. E [Concomitant]
  8. FISH OIL [Concomitant]
  9. CHONDROITIN [Concomitant]
  10. GLUCOSAMINE [Concomitant]
  11. ALEVE [Concomitant]
  12. AMRIX [Concomitant]

REACTIONS (5)
  - Diarrhoea [None]
  - Pyrexia [None]
  - Influenza [None]
  - Muscle spasms [None]
  - Pain [None]
